FAERS Safety Report 10164110 (Version 1)
Quarter: 2014Q2

REPORT INFORMATION
  Report Type: Spontaneous
  Country: US (occurrence: US)
  Receive Date: 20140510
  Receipt Date: 20140510
  Transmission Date: 20141212
  Serious: No
  Sender: FDA-Public Use
  Company Number: US-BRISTOL-MYERS SQUIBB COMPANY-19941616

PATIENT
  Age: 70 Year
  Sex: Male
  Weight: 125.17 kg

DRUGS (6)
  1. BYETTA [Suspect]
     Indication: TYPE 2 DIABETES MELLITUS
  2. GLIMEPIRIDE [Suspect]
     Dosage: TABS
  3. CLONIDINE [Concomitant]
  4. SIMVASTATIN [Concomitant]
  5. LOSARTAN [Concomitant]
  6. ETODOLAC [Concomitant]

REACTIONS (3)
  - Drug ineffective [Unknown]
  - Weight decreased [Unknown]
  - Weight increased [Unknown]
